FAERS Safety Report 10258173 (Version 1)
Quarter: 2014Q2

REPORT INFORMATION
  Report Type: Spontaneous
  Country: US (occurrence: None)
  Receive Date: 20140623
  Receipt Date: 20140623
  Transmission Date: 20141212
  Serious: Yes (Hospitalization)
  Sender: FDA-Public Use
  Company Number: UNT-2014-002252

PATIENT
  Age: 44 Year
  Sex: Male
  Weight: 122.4 kg

DRUGS (3)
  1. REMODULIN [Suspect]
     Indication: COR PULMONALE CHRONIC
     Route: 058
     Dates: start: 20130601
  2. LETAIRIS (AMBRISENTAN) [Concomitant]
  3. ADCIRCA (TADALAFIL) [Concomitant]

REACTIONS (3)
  - Acute respiratory failure [None]
  - Pulmonary arterial hypertension [None]
  - Cardiac failure congestive [None]
